FAERS Safety Report 25761927 (Version 1)
Quarter: 2025Q3

REPORT INFORMATION
  Report Type: Spontaneous
  Country: US (occurrence: US)
  Receive Date: 20250904
  Receipt Date: 20250904
  Transmission Date: 20251021
  Serious: No
  Sender: SANOFI AVENTIS
  Company Number: US-SA-2025SA264397

PATIENT
  Sex: Female

DRUGS (8)
  1. DUPIXENT [Suspect]
     Active Substance: DUPILUMAB
     Indication: Eosinophilic oesophagitis
     Dosage: 300 MG, QW
     Route: 058
     Dates: start: 20240305
  2. AZITHROMYCIN [Concomitant]
     Active Substance: AZITHROMYCIN
  3. FLUCONAZOLE [Concomitant]
     Active Substance: FLUCONAZOLE
  4. VITAMINS [Concomitant]
     Active Substance: VITAMINS
  5. OMEPRAZOLE [Concomitant]
     Active Substance: OMEPRAZOLE
  6. OXYCODONE [Concomitant]
     Active Substance: OXYCODONE
  7. PREDNISONE [Concomitant]
     Active Substance: PREDNISONE
  8. RYALTRIS [Concomitant]
     Active Substance: MOMETASONE FUROATE MONOHYDRATE\OLOPATADINE HYDROCHLORIDE

REACTIONS (1)
  - Drug ineffective [Unknown]
